FAERS Safety Report 16255691 (Version 1)
Quarter: 2019Q2

REPORT INFORMATION
  Report Type: Spontaneous
  Country: US (occurrence: US)
  Receive Date: 20190430
  Receipt Date: 20190430
  Transmission Date: 20190711
  Serious: No
  Sender: FDA-Public Use
  Company Number: US-PERRIGO-19US001590

PATIENT
  Sex: Female

DRUGS (3)
  1. THYROID THERAPY [Concomitant]
     Active Substance: UNSPECIFIED INGREDIENT
     Indication: THYROID DISORDER
     Dosage: UNK
     Route: 065
  2. OMEPRAZOLE AND SODIUM BICARBONATE [Suspect]
     Active Substance: OMEPRAZOLE\SODIUM BICARBONATE
     Indication: GASTRIC ULCER
     Dosage: UNKNOWN, UNKNOWN
     Route: 048
     Dates: start: 201901
  3. HERBAL NOS [Concomitant]
     Active Substance: HERBALS
     Indication: SUPPLEMENTATION THERAPY
     Dosage: 5 REST AND RELAX SUPPLEMENT HERBS
     Route: 065

REACTIONS (1)
  - Off label use [Unknown]

NARRATIVE: CASE EVENT DATE: 201901
